FAERS Safety Report 8989205 (Version 3)
Quarter: 2013Q1

REPORT INFORMATION
  Report Type: Spontaneous
  Country: GB (occurrence: None)
  Receive Date: 20121219
  Receipt Date: 20130129
  Transmission Date: 20140127
  Serious: Yes (Hospitalization, Other)
  Sender: FDA-Public Use
  Company Number: AUR-APL-2012-05354

PATIENT
  Age: 30 Year
  Sex: Male

DRUGS (5)
  1. OLANZAPINE (OLANZAPINE) [Suspect]
     Indication: SCHIZOPHRENIA, PARANOID TYPE
     Route: 048
     Dates: start: 20121018, end: 20121105
  2. HALDOL [Concomitant]
  3. LORAZEPAM (LORAZEPAM) [Concomitant]
  4. QUETIAPINE (QUETIAPINE) (QUETIAPINE) [Concomitant]
  5. RISPERIDONE (RISPERIDONE) [Concomitant]

REACTIONS (3)
  - Hypersensitivity [None]
  - Body temperature fluctuation [None]
  - Rash erythematous [None]
